FAERS Safety Report 14380829 (Version 2)
Quarter: 2018Q1

REPORT INFORMATION
  Report Type: Spontaneous
  Country: FR (occurrence: FR)
  Receive Date: 20180112
  Receipt Date: 20180116
  Transmission Date: 20180509
  Serious: Yes (Death, Hospitalization)
  Sender: FDA-Public Use
  Company Number: FR-TEVA-2018-FR-846036

PATIENT
  Age: 66 Year
  Sex: Male
  Weight: 69 kg

DRUGS (5)
  1. ZAVEDOS [Concomitant]
     Active Substance: IDARUBICIN
     Indication: BLASTIC PLASMACYTOID DENDRITIC CELL NEOPLASIA
     Route: 041
     Dates: start: 20170824, end: 20170824
  2. METFORMIN [Suspect]
     Active Substance: METFORMIN HYDROCHLORIDE
     Indication: TYPE 2 DIABETES MELLITUS
     Dosage: 1 G, 3 TIMES A DAY
     Route: 048
     Dates: start: 20170826
  3. METHOTREXATE MYLAN [Concomitant]
     Active Substance: METHOTREXATE SODIUM
     Indication: BLASTIC PLASMACYTOID DENDRITIC CELL NEOPLASIA
     Route: 041
     Dates: start: 20170824, end: 20170824
  4. KIDROLASE [Concomitant]
     Active Substance: ASPARAGINASE
     Indication: BLASTIC PLASMACYTOID DENDRITIC CELL NEOPLASIA
     Route: 041
     Dates: start: 20170825, end: 20170825
  5. JANUVIA [Concomitant]
     Active Substance: SITAGLIPTIN PHOSPHATE
     Indication: PRODUCT USED FOR UNKNOWN INDICATION
     Route: 048
     Dates: end: 20170826

REACTIONS (3)
  - Overdose [Fatal]
  - Lactic acidosis [Fatal]
  - Drug level increased [Fatal]

NARRATIVE: CASE EVENT DATE: 20170826
